FAERS Safety Report 23206229 (Version 3)
Quarter: 2024Q1

REPORT INFORMATION
  Report Type: Spontaneous
  Country: US (occurrence: US)
  Receive Date: 20231120
  Receipt Date: 20240118
  Transmission Date: 20240410
  Serious: No
  Sender: FDA-Public Use
  Company Number: US-PPDUS-2023ST004352

PATIENT
  Age: 64 Year
  Sex: Female

DRUGS (2)
  1. ORSERDU [Suspect]
     Active Substance: ELACESTRANT
     Indication: Product used for unknown indication
     Dosage: 258MG, 3 TABLETS, ONCE A DAY BY MOUTH.
     Route: 048
     Dates: start: 20231019
  2. ORSERDU [Suspect]
     Active Substance: ELACESTRANT
     Dosage: 172 MG, 2 TABLETS, ONCE A DAY BY MOUTH.
     Route: 048

REACTIONS (9)
  - Metastases to liver [Unknown]
  - Drug intolerance [Unknown]
  - Pruritus [Recovered/Resolved]
  - Vomiting [Recovered/Resolved]
  - Diarrhoea [Recovered/Resolved]
  - Nausea [Unknown]
  - Fatigue [Unknown]
  - Arthralgia [Recovered/Resolved]
  - Drug hypersensitivity [Recovered/Resolved]
